FAERS Safety Report 9361993 (Version 1)
Quarter: 2013Q2

REPORT INFORMATION
  Report Type: Spontaneous
  Country: JP (occurrence: JP)
  Receive Date: 20130621
  Receipt Date: 20130621
  Transmission Date: 20140414
  Serious: Yes (Hospitalization, Other)
  Sender: FDA-Public Use
  Company Number: JP-GILEAD-2013-0075149

PATIENT
  Age: 68 Year
  Sex: Female

DRUGS (2)
  1. HEPSERA [Suspect]
     Indication: PRODUCT USED FOR UNKNOWN INDICATION
     Dosage: 10 MG, QD
     Route: 048
     Dates: start: 200803
  2. LAMIVUDINE [Concomitant]
     Indication: HEPATITIS B
     Route: 048
     Dates: start: 2006

REACTIONS (8)
  - Arthralgia [Unknown]
  - Hyperphosphatasaemia [Unknown]
  - Metabolic acidosis [Unknown]
  - Hypouricaemia [Unknown]
  - Fanconi syndrome acquired [Unknown]
  - Osteomalacia [Unknown]
  - Hypophosphataemia [Unknown]
  - Bone pain [Recovering/Resolving]
